FAERS Safety Report 8762904 (Version 1)
Quarter: 2012Q4

REPORT INFORMATION
  Report Type: Spontaneous
  Country: US (occurrence: None)
  Receive Date: 20120830
  Receipt Date: 20120830
  Transmission Date: 20130627
  Serious: Yes (Hospitalization)
  Sender: FDA-Public Use
  Company Number: None

PATIENT
  Age: 86 Year
  Sex: Female
  Weight: 76.66 kg

DRUGS (4)
  1. ATORVASTATIN [Suspect]
     Indication: STROKE
     Dosage: 1 tab once a night po
     Route: 048
     Dates: start: 20120815, end: 20120828
  2. METOPROLOL [Concomitant]
  3. ALBUTEROL [Concomitant]
  4. VITAMIN D [Concomitant]

REACTIONS (6)
  - Myalgia [None]
  - Back pain [None]
  - Abdominal pain upper [None]
  - Feeling abnormal [None]
  - Activities of daily living impaired [None]
  - Decreased appetite [None]
